FAERS Safety Report 8781054 (Version 2)
Quarter: 2013Q1

REPORT INFORMATION
  Report Type: Spontaneous
  Country: US (occurrence: US)
  Receive Date: 20120913
  Receipt Date: 20130114
  Transmission Date: 20140127
  Serious: No
  Sender: FDA-Public Use
  Company Number: US-009507513-1209USA002224

PATIENT
  Sex: Female

DRUGS (5)
  1. SAPHRIS [Suspect]
     Indication: BIPOLAR DISORDER
     Dosage: 5 MG, UNK
     Route: 048
     Dates: start: 20120508, end: 20120523
  2. SAPHRIS [Suspect]
     Dosage: 10 MG, UNK
     Route: 048
     Dates: start: 20120524, end: 20120630
  3. SAPHRIS [Suspect]
     Dosage: 5 MG, UNK
     Route: 048
     Dates: start: 2012
  4. VALIUM [Concomitant]
  5. FOLIC ACID [Concomitant]

REACTIONS (4)
  - Restlessness [Not Recovered/Not Resolved]
  - Akathisia [Not Recovered/Not Resolved]
  - Back disorder [Not Recovered/Not Resolved]
  - Panic disorder [Not Recovered/Not Resolved]
